FAERS Safety Report 4712222-0 (Version None)
Quarter: 2005Q3

REPORT INFORMATION
  Report Type: 
  Country: None (occurrence: None)
  Receive Date: 20050712
  Receipt Date: 20050622
  Transmission Date: 20060218
  Serious: Yes (Other)
  Sender: FDA-Public Use
  Company Number: PHEH2005US07057

PATIENT
  Age: 25 Year
  Sex: Female

DRUGS (8)
  1. CLOZARIL [Suspect]
     Indication: SCHIZOPHRENIA
     Dosage: UNK MG, UNK
     Route: 048
  2. COGENTIN [Concomitant]
  3. HALDOL [Concomitant]
  4. AVANDIA [Concomitant]
  5. PAXIL [Concomitant]
  6. DETROL [Concomitant]
  7. PHENYTOIN [Concomitant]
  8. CONTRACEPTIVES UNS [Suspect]

REACTIONS (7)
  - ACTIVITIES OF DAILY LIVING IMPAIRED [None]
  - CEREBRAL ARTERY EMBOLISM [None]
  - CEREBROVASCULAR ACCIDENT [None]
  - CONVULSION [None]
  - NEUTROPENIA [None]
  - PLATELET COUNT INCREASED [None]
  - WHITE BLOOD CELL COUNT DECREASED [None]
